FAERS Safety Report 5350564-9 (Version None)
Quarter: 2007Q2

REPORT INFORMATION
  Report Type: 
  Country: None (occurrence: None)
  Receive Date: 20070606
  Receipt Date: 20070522
  Transmission Date: 20071010
  Serious: Yes (Life-Threatening, Hospitalization)
  Sender: FDA-Public Use
  Company Number: 37614

PATIENT
  Age: 77 Year
  Sex: Female

DRUGS (1)
  1. PROPOFOL [Suspect]
     Indication: SEDATION
     Dosage: 112MG/IV
     Route: 042

REACTIONS (7)
  - AKINESIA [None]
  - CARDIAC DISORDER [None]
  - CARDIOMYOPATHY [None]
  - HEART RATE DECREASED [None]
  - HYPOTENSION [None]
  - TACHYCARDIA [None]
  - VENTRICULAR TACHYCARDIA [None]
